FAERS Safety Report 5835684-4 (Version None)
Quarter: 2008Q3

REPORT INFORMATION
  Report Type: 
  Country: None (occurrence: None)
  Receive Date: 20080806
  Receipt Date: 20080730
  Transmission Date: 20090109
  Serious: Yes (Other)
  Sender: FDA-Public Use
  Company Number: US-ABBOTT-08P-163-0467261-00

PATIENT
  Age: 53 Year
  Sex: Male

DRUGS (6)
  1. ADALIMUMAB [Suspect]
     Indication: PSORIASIS
     Dosage: NOT REPORTED
  2. ADALIMUMAB [Suspect]
     Indication: PSORIATIC ARTHROPATHY
  3. METHOTREXATE [Concomitant]
     Indication: PSORIASIS
     Dosage: NOT REPORTED
  4. METHOTREXATE [Concomitant]
     Indication: PSORIATIC ARTHROPATHY
  5. AZATHIOPRINE [Concomitant]
     Indication: PSORIASIS
     Dosage: NOT REPORTED
  6. AZATHIOPRINE [Concomitant]
     Indication: PSORIATIC ARTHROPATHY

REACTIONS (1)
  - PUSTULAR PSORIASIS [None]
